FAERS Safety Report 12578647 (Version 5)
Quarter: 2016Q4

REPORT INFORMATION
  Report Type: Spontaneous
  Country: US (occurrence: US)
  Receive Date: 20160721
  Receipt Date: 20161011
  Transmission Date: 20170207
  Serious: Yes (Other)
  Sender: FDA-Public Use
  Company Number: US-PFIZER INC-2016334933

PATIENT
  Age: 75 Year
  Sex: Female
  Weight: 63 kg

DRUGS (6)
  1. IBRANCE [Suspect]
     Active Substance: PALBOCICLIB
     Dosage: 100 MG, CYCLIC (ON DAYS 1-21 OF A 28-DAY CYCLE)
     Route: 048
     Dates: start: 20160803
  2. VITAMIN C [Concomitant]
     Active Substance: ASCORBIC ACID
     Dosage: 1X/DAY (ONE DAILY)
  3. IBRANCE [Suspect]
     Active Substance: PALBOCICLIB
     Dosage: UNK
  4. IBRANCE [Suspect]
     Active Substance: PALBOCICLIB
     Indication: BREAST CANCER METASTATIC
     Dosage: 125 MG, CYCLIC (ON DAYS 1-21 OF A 28-DAY CYCLE)
     Route: 048
     Dates: start: 20160627, end: 20160711
  5. VITAMIN B12 [Concomitant]
     Active Substance: CYANOCOBALAMIN
     Dosage: 1X/DAY (ONE DAILY)
  6. CRANBERRY. [Concomitant]
     Active Substance: CRANBERRY
     Dosage: UNK, 1X/DAY (ONE DAILY)

REACTIONS (6)
  - Nausea [Recovering/Resolving]
  - Neoplasm progression [Unknown]
  - Rash generalised [Recovered/Resolved]
  - Constipation [Unknown]
  - Blister [Recovering/Resolving]
  - Rash pruritic [Recovering/Resolving]

NARRATIVE: CASE EVENT DATE: 201607
